FAERS Safety Report 9656020 (Version 5)
Quarter: 2014Q1

REPORT INFORMATION
  Report Type: Spontaneous
  Country: IT (occurrence: IT)
  Receive Date: 20131030
  Receipt Date: 20140228
  Transmission Date: 20141002
  Serious: Yes (Life-Threatening, Hospitalization, Other)
  Sender: FDA-Public Use
  Company Number: IT-MPIJNJ-2013JNJ000728

PATIENT
  Sex: 0

DRUGS (5)
  1. VELCADE [Suspect]
     Indication: PLASMA CELL MYELOMA
     Dosage: 1.3 MG/M2, UNK
     Route: 065
     Dates: start: 20131011, end: 20131011
  2. VELCADE [Suspect]
     Dosage: 2 MG/M2, UNK
     Route: 058
     Dates: start: 20131011, end: 20131011
  3. DEXAMETHASONE [Concomitant]
     Dosage: UNK
     Route: 065
  4. TACHIDOL [Concomitant]
     Indication: PRODUCT USED FOR UNKNOWN INDICATION
     Dosage: UNK
     Route: 048
  5. LANSOPRAZOLE [Concomitant]
     Dosage: UNK

REACTIONS (1)
  - Convulsion [Recovered/Resolved]
